FAERS Safety Report 25525603 (Version 1)
Quarter: 2025Q3

REPORT INFORMATION
  Report Type: Spontaneous
  Country: US (occurrence: US)
  Receive Date: 20250707
  Receipt Date: 20250707
  Transmission Date: 20251020
  Serious: No
  Sender: BAYER HEALTHCARE PHARMACEUTICALS INC.
  Company Number: US-BAYER-2025A087133

PATIENT
  Age: 51 Year
  Sex: Female
  Weight: 80.5 kg

DRUGS (2)
  1. PRAZIQUANTEL [Suspect]
     Active Substance: PRAZIQUANTEL
     Indication: Neurocysticercosis
     Dosage: 1350 MG, TID
  2. ALBENDAZOLE [Concomitant]
     Active Substance: ALBENDAZOLE
     Dosage: 600 MG, BID

REACTIONS (2)
  - Product use in unapproved indication [None]
  - Product prescribing issue [None]
